FAERS Safety Report 5147845-0 (Version None)
Quarter: 2006Q4

REPORT INFORMATION
  Report Type: 
  Country: None (occurrence: None)
  Receive Date: 20061110
  Receipt Date: 20061107
  Transmission Date: 20070319
  Serious: Yes (Hospitalization)
  Sender: FDA-Public Use
  Company Number: DE-BAYER-200611491BVD

PATIENT
  Age: 93 Year
  Sex: Female

DRUGS (7)
  1. ADALAT [Suspect]
     Indication: HYPERTENSION
     Route: 048
     Dates: start: 20000101
  2. DIPIPERON [Suspect]
     Route: 048
     Dates: start: 20060919, end: 20060923
  3. RISPERDAL [Suspect]
     Route: 048
     Dates: start: 20060701
  4. BELOC MITE [Suspect]
     Route: 048
     Dates: start: 20000101
  5. ENAHEXAL [Concomitant]
     Route: 048
     Dates: start: 20000101
  6. FUROSEMIDE [Concomitant]
     Route: 048
     Dates: start: 20020101
  7. MELNEURIN [Concomitant]
     Route: 048
     Dates: start: 20060924

REACTIONS (2)
  - GRAND MAL CONVULSION [None]
  - STATUS EPILEPTICUS [None]
